FAERS Safety Report 11115753 (Version 1)
Quarter: 2015Q2

REPORT INFORMATION
  Report Type: Spontaneous
  Country: US (occurrence: None)
  Receive Date: 20150504
  Receipt Date: 20150504
  Transmission Date: 20150821
  Serious: Yes (Hospitalization)
  Sender: FDA-Public Use
  Company Number: 1506201

PATIENT
  Age: 79 Year
  Sex: Female
  Weight: 62.6 kg

DRUGS (7)
  1. NORCO (HYDROCODONE TARTRATE, PARACETAMOL) [Concomitant]
  2. AVASTIN [Suspect]
     Active Substance: BEVACIZUMAB
     Indication: FALLOPIAN TUBE CANCER
     Dates: start: 20141113
  3. MOTRIN [Concomitant]
     Active Substance: IBUPROFEN
  4. ATORVASTATIN [Concomitant]
     Active Substance: ATORVASTATIN
  5. CYMBALTA [Concomitant]
     Active Substance: DULOXETINE HYDROCHLORIDE
  6. OMEPRAZOLE. [Concomitant]
     Active Substance: OMEPRAZOLE
  7. WARFARIN [Concomitant]
     Active Substance: WARFARIN

REACTIONS (2)
  - Hypertension [None]
  - Transient ischaemic attack [None]

NARRATIVE: CASE EVENT DATE: 20141124
